FAERS Safety Report 9113479 (Version 1)
Quarter: 2013Q1

REPORT INFORMATION
  Report Type: Spontaneous
  Country: US (occurrence: US)
  Receive Date: 20130129
  Receipt Date: 20130129
  Transmission Date: 20140127
  Serious: Yes (Hospitalization)
  Sender: FDA-Public Use
  Company Number: US-009507513-1301USA003693

PATIENT
  Age: 26 Year
  Sex: Female

DRUGS (3)
  1. MONTELUKAST SODIUM [Suspect]
  2. DESLORATADINE [Suspect]
  3. PULMICORT [Suspect]

REACTIONS (2)
  - Thrombocytopenia [Unknown]
  - Contusion [Unknown]
